FAERS Safety Report 5402731-3 (Version None)
Quarter: 2007Q3

REPORT INFORMATION
  Report Type: 
  Country: None (occurrence: None)
  Receive Date: 20070801
  Receipt Date: 20070723
  Transmission Date: 20080115
  Serious: Yes (Life-Threatening, Hospitalization, Other)
  Sender: FDA-Public Use
  Company Number: JP-BRISTOL-MYERS SQUIBB COMPANY-13816475

PATIENT
  Age: 61 Year
  Sex: Male

DRUGS (8)
  1. CYCLOPHOSPHAMIDE [Suspect]
     Indication: MULTIPLE MYELOMA
     Route: 041
     Dates: start: 20070521, end: 20070522
  2. FAMOTIDINE [Concomitant]
  3. MUCOSTA [Concomitant]
  4. OZEX [Concomitant]
  5. DIFLUCAN [Concomitant]
  6. MAGNESIUM OXIDE [Concomitant]
  7. PURSENNID [Concomitant]
  8. UROMITEXAN [Concomitant]
     Indication: PROPHYLAXIS
     Dates: start: 20070521, end: 20070522

REACTIONS (5)
  - ALTERED STATE OF CONSCIOUSNESS [None]
  - BACK PAIN [None]
  - DELIRIUM [None]
  - RHABDOMYOLYSIS [None]
  - TREMOR [None]
